FAERS Safety Report 10152163 (Version 1)
Quarter: 2014Q2

REPORT INFORMATION
  Report Type: Spontaneous
  Country: GB (occurrence: None)
  Receive Date: 20140501
  Receipt Date: 20140501
  Transmission Date: 20141212
  Serious: Yes (Hospitalization)
  Sender: FDA-Public Use
  Company Number: GB-20140019

PATIENT
  Age: 43 Year
  Sex: Female

DRUGS (1)
  1. DOTAREM (GADOTERIC ACID) [Suspect]
     Indication: NUCLEAR MAGNETIC RESONANCE IMAGING
     Route: 042
     Dates: start: 20140416, end: 20140416

REACTIONS (6)
  - Dyspnoea [None]
  - Paraesthesia [None]
  - Feeling hot [None]
  - Hypotension [None]
  - Pallor [None]
  - Hyperhidrosis [None]
